FAERS Safety Report 11021042 (Version 4)
Quarter: 2018Q3

REPORT INFORMATION
  Report Type: Spontaneous
  Country: JP (occurrence: JP)
  Receive Date: 20150413
  Receipt Date: 20180706
  Transmission Date: 20181010
  Serious: Yes (Other)
  Sender: FDA-Public Use
  Company Number: JP-SHIRE-JP201503114

PATIENT

DRUGS (17)
  1. DIOVAN [Concomitant]
     Active Substance: VALSARTAN
     Indication: HYPERTENSION
     Dosage: 80 MG,
     Route: 048
     Dates: start: 20070924
  2. ESBERIZYM [Concomitant]
     Indication: DYSPEPSIA
     Dosage: 1.5 G, UNK
     Route: 048
     Dates: start: 20060830
  3. ZESULAN [Concomitant]
     Active Substance: MEQUITAZINE
     Indication: ECZEMA
     Dosage: 6 MG, UNK
     Route: 048
     Dates: start: 20080213
  4. ALOSENN [Concomitant]
     Active Substance: SENNA LEAF
     Indication: CONSTIPATION
     Dosage: 1.5 G, UNK
     Route: 048
     Dates: start: 20080107
  5. REGPARA [Concomitant]
     Active Substance: CINACALCET HYDROCHLORIDE
     Indication: HYPERPARATHYROIDISM SECONDARY
     Dosage: 25 MG, UNKNOWN
     Route: 048
     Dates: start: 20130422
  6. RENAGEL [Concomitant]
     Active Substance: SEVELAMER HYDROCHLORIDE
     Indication: PRODUCT USED FOR UNKNOWN INDICATION
     Dosage: UNK
     Route: 065
     Dates: start: 20050902, end: 20091117
  7. VASOLAN [Concomitant]
     Active Substance: VERAPAMIL HYDROCHLORIDE
     Indication: HYPERTENSION
     Dosage: 120 MG, UNK
     Route: 048
     Dates: start: 20060626
  8. KALLIKREIN [Concomitant]
     Active Substance: KALLIKREIN
     Indication: HYPERTENSION
     Dosage: 30 IU, UNK
     Route: 048
     Dates: start: 20060421
  9. CALTAN [Concomitant]
     Active Substance: CALCIUM CARBONATE
     Indication: HYPERPHOSPHATAEMIA
     Dosage: 1500 MG, UNK
     Route: 048
     Dates: start: 20120517
  10. FOSRENOL [Suspect]
     Active Substance: LANTHANUM CARBONATE
     Dosage: 1500 MG, DAILY DOSE
     Route: 048
     Dates: start: 20100623, end: 20130829
  11. CARDENALIN [Concomitant]
     Active Substance: DOXAZOSIN MESYLATE
     Indication: HYPERTENSION
     Dosage: 2 MG, UNK
     Route: 048
     Dates: start: 20070209
  12. TAKEPRON [Concomitant]
     Active Substance: LANSOPRAZOLE
     Indication: GASTRITIS EROSIVE
     Dosage: 15 MG, UNK
     Route: 048
     Dates: start: 20061004
  13. MARZULENE?S [Concomitant]
     Active Substance: SODIUM GUALENATE
     Indication: GASTRITIS
     Dosage: 1.5 G, UNK
     Route: 048
     Dates: start: 20060830
  14. BERIZYM [Concomitant]
     Active Substance: CELLULASE\DIASTASE\LIPASE
     Indication: DYSPEPSIA
     Dosage: 1.5 G, UNK
     Route: 048
     Dates: start: 20060803
  15. FOSRENOL [Suspect]
     Active Substance: LANTHANUM CARBONATE
     Indication: HYPERPHOSPHATAEMIA
     Dosage: 750 MG, DAILY DOSE
     Route: 048
     Dates: start: 20091118, end: 20100622
  16. THYRADIN S [Concomitant]
     Active Substance: LEVOTHYROXINE SODIUM
     Indication: HYPOTHYROIDISM
     Dosage: 25 ?G, UNK
     Route: 048
     Dates: start: 20010419
  17. WAL PROFEN COLD AND SINUS [Concomitant]
     Active Substance: IBUPROFEN\PSEUDOEPHEDRINE HYDROCHLORIDE
     Indication: PRODUCT USED FOR UNKNOWN INDICATION
     Dosage: UNK
     Dates: start: 20120517

REACTIONS (5)
  - Weight decreased [Recovered/Resolved]
  - Medication residue present [Not Recovered/Not Resolved]
  - Gastric mucosal hypertrophy [Not Recovered/Not Resolved]
  - Decreased appetite [Recovering/Resolving]
  - Nausea [Recovering/Resolving]

NARRATIVE: CASE EVENT DATE: 20130610
